FAERS Safety Report 7557283-9 (Version None)
Quarter: 2011Q2

REPORT INFORMATION
  Report Type: 
  Country: None (occurrence: None)
  Receive Date: 20110620
  Receipt Date: 20080513
  Transmission Date: 20111010
  Serious: Yes (Death, Hospitalization)
  Sender: FDA-Public Use
  Company Number: PHHY2008BR07880

PATIENT
  Age: 90 Year
  Sex: Male

DRUGS (4)
  1. ANCORON [Concomitant]
     Indication: CARDIAC FAILURE
  2. FUROSEMIDE [Concomitant]
     Indication: CARDIAC FAILURE
  3. FORMOTEROL FUMARATE [Suspect]
     Indication: CHRONIC OBSTRUCTIVE PULMONARY DISEASE
     Dosage: UNK, BID
     Dates: start: 20040501
  4. DIGOXIN [Concomitant]
     Indication: CARDIAC FAILURE

REACTIONS (1)
  - RENAL FAILURE CHRONIC [None]
